FAERS Safety Report 7931043-9 (Version None)
Quarter: 2011Q4

REPORT INFORMATION
  Report Type: 
  Country: None (occurrence: None)
  Receive Date: 20111121
  Receipt Date: 20110526
  Transmission Date: 20120403
  Serious: Yes (Hospitalization, Other)
  Sender: FDA-Public Use
  Company Number: US-BAYER-201021687NA

PATIENT
  Age: 35 Year
  Sex: Female
  Weight: 99.773 kg

DRUGS (16)
  1. RENVELA [Concomitant]
  2. CLONIDINE [Concomitant]
     Dosage: 0.2 MG, BID
     Route: 048
  3. NEURONTIN [Concomitant]
  4. YAZ [Suspect]
     Indication: CONTRACEPTION
  5. YAZ [Suspect]
     Indication: OVARIAN CYST
  6. IMDUR [Concomitant]
     Dosage: DAILY DOSE 30 MG
     Route: 048
  7. YAZ [Suspect]
     Indication: ACNE
     Dosage: UNK
     Dates: start: 20070101, end: 20080301
  8. YAZ [Suspect]
     Indication: PREMENSTRUAL SYNDROME
  9. NORVASC [Concomitant]
  10. ENALAPRIL MALEATE [Concomitant]
     Dosage: DAILY DOSE 10 MG
     Route: 048
  11. COLACE [Concomitant]
     Dosage: 100 MG, BID
     Route: 048
  12. TORADOL [Concomitant]
     Indication: ABDOMINAL PAIN
     Dosage: UNK
     Dates: start: 20080811
  13. SENSIPAR [Concomitant]
  14. METOCLOPRAMIDE [Concomitant]
     Dosage: 10 MG, TID
  15. DARVOCET [Concomitant]
     Dosage: UNK UNK, PRN
     Route: 048
  16. RENAGEL [Concomitant]
     Dosage: 800 MG, TID
     Route: 048

REACTIONS (3)
  - INJURY [None]
  - ISCHAEMIC STROKE [None]
  - CEREBROVASCULAR ACCIDENT [None]
